FAERS Safety Report 12545417 (Version 2)
Quarter: 2016Q3

REPORT INFORMATION
  Report Type: Report from Study
  Country: CH (occurrence: CH)
  Receive Date: 20160711
  Receipt Date: 20160728
  Transmission Date: 20161109
  Serious: Yes (Hospitalization)
  Sender: FDA-Public Use
  Company Number: CH-009507513-1607CHE002485

PATIENT
  Age: 74 Year
  Sex: Male

DRUGS (31)
  1. BELOC-ZOK [Concomitant]
     Active Substance: METOPROLOL SUCCINATE
     Indication: HYPERTENSION
     Dosage: 25 MG, QD
     Route: 048
     Dates: start: 2005
  2. KEPPRA [Concomitant]
     Active Substance: LEVETIRACETAM
     Indication: EPILEPSY
     Dosage: 500 MG, BID
     Route: 048
     Dates: start: 20151112
  3. NOVOMIX 30 [Concomitant]
     Active Substance: INSULIN ASPART
     Indication: DIABETES MELLITUS
     Dosage: 26-0-14 IU
     Route: 058
     Dates: start: 20160606
  4. TORSEMIDE. [Concomitant]
     Active Substance: TORSEMIDE
     Dosage: 10 MG, QD
     Route: 048
     Dates: start: 201604
  5. DEXAMETHASONE. [Concomitant]
     Active Substance: DEXAMETHASONE
     Indication: EYE DISORDER
     Dosage: 2 GTT, Q8H, EACH EYE
     Route: 047
     Dates: start: 20160612, end: 20160618
  6. DISTRANEURIN [Concomitant]
     Active Substance: CLOMETHIAZOLE
     Indication: ANXIETY
     Dosage: 192 MG, QPM
     Route: 048
     Dates: start: 20160614
  7. COSOPT [Concomitant]
     Active Substance: DORZOLAMIDE HYDROCHLORIDE\TIMOLOL MALEATE
     Indication: GLAUCOMA
     Dosage: 1 DROP, BID, IN LEFT EYE
     Route: 047
     Dates: start: 2005
  8. SINTROM [Concomitant]
     Active Substance: ACENOCOUMAROL
     Indication: ATRIAL FIBRILLATION
     Dosage: 1 MG, UNK, ACCORDING TO INR
     Route: 048
     Dates: start: 2005
  9. BELOC-ZOK [Concomitant]
     Active Substance: METOPROLOL SUCCINATE
     Indication: HYPERTENSIVE CARDIOMYOPATHY
  10. NEXIUM [Concomitant]
     Active Substance: ESOMEPRAZOLE MAGNESIUM
     Indication: GASTRIC DISORDER
     Dosage: 40 MG, QD
     Route: 048
     Dates: start: 201511
  11. SIMVASTATIN. [Concomitant]
     Active Substance: SIMVASTATIN
     Indication: HYPERLIPIDAEMIA
     Dosage: 40 MG, QD
     Route: 048
     Dates: start: 2005
  12. AVAMYS [Concomitant]
     Active Substance: FLUTICASONE FUROATE
     Indication: RHINITIS ALLERGIC
     Dosage: 2 DF, QD
     Route: 045
     Dates: start: 20160321
  13. BACTRIM [Concomitant]
     Active Substance: SULFAMETHOXAZOLE\TRIMETHOPRIM
     Indication: INFECTION PROPHYLAXIS
     Dosage: 800/160 (0.5 TABLET, QD)
     Route: 048
     Dates: start: 20160318
  14. DEXAMETHASONE. [Concomitant]
     Active Substance: DEXAMETHASONE
     Indication: BRAIN OEDEMA
     Dosage: 4 MG, QD
     Route: 048
     Dates: start: 20160318, end: 20160614
  15. IMPORTAL [Concomitant]
     Active Substance: LACTITOL
     Indication: CONSTIPATION
     Dosage: 10 ML, QD, AS REQUIRED (PRN)
     Route: 048
     Dates: start: 201604, end: 20160613
  16. SINTROM [Concomitant]
     Active Substance: ACENOCOUMAROL
     Indication: MYOCARDIAL INFARCTION
  17. CYANOCOBALAMIN. [Concomitant]
     Active Substance: CYANOCOBALAMIN
     Indication: VITAMIN B12 DEFICIENCY
     Dosage: 1 MG, QM
     Route: 058
     Dates: start: 20160424
  18. ABT-414 [Suspect]
     Active Substance: INVESTIGATIONAL PRODUCT
     Indication: GLIOBLASTOMA
     Dosage: 1 MG/KG, 1 IN 2 WEEKS (QOW)
     Route: 042
     Dates: start: 20160531, end: 20160614
  19. QUETIAPINE FUMARATE. [Concomitant]
     Active Substance: QUETIAPINE FUMARATE
     Indication: ADJUSTMENT DISORDER WITH DEPRESSED MOOD
     Dosage: DAILY DOSE: 12.5 MG, QAM 25 MG, QPM
     Route: 048
     Dates: start: 201604
  20. NITROGLYCERIN. [Concomitant]
     Active Substance: NITROGLYCERIN
     Indication: ANGINA PECTORIS
     Dosage: TOTAL DAILY DOSE: 0.8 MG, PRN
     Route: 048
     Dates: start: 2005
  21. TEMOZOLOMIDE. [Suspect]
     Active Substance: TEMOZOLOMIDE
     Indication: GLIOBLASTOMA
     Dosage: 150 MG/M2, ON DAYS 1-5 OF 28 DAYS CYCLE
     Route: 048
     Dates: start: 20160531, end: 20160604
  22. KEPPRA [Concomitant]
     Active Substance: LEVETIRACETAM
     Indication: PROPHYLAXIS
  23. TORSEMIDE. [Concomitant]
     Active Substance: TORSEMIDE
     Indication: HYPERTENSION
     Dosage: 5 MG, QD
     Route: 048
     Dates: start: 20160324
  24. BEPANTHEN (DEXPANTHENOL) [Concomitant]
     Indication: SKIN ABRASION
     Dosage: 1 DF, BID
     Route: 061
     Dates: start: 20160614
  25. DEXAMETHASONE. [Concomitant]
     Active Substance: DEXAMETHASONE
     Dosage: 3 MG, QD
     Route: 048
     Dates: start: 20160615
  26. NEXIUM [Concomitant]
     Active Substance: ESOMEPRAZOLE MAGNESIUM
     Indication: PROPHYLAXIS
  27. SINTROM [Concomitant]
     Active Substance: ACENOCOUMAROL
     Indication: HYPERTENSIVE CARDIOMYOPATHY
  28. CICATREX [Concomitant]
     Indication: SKIN ABRASION
     Dosage: 1 DF, QD
     Route: 061
     Dates: start: 20160614
  29. EXCIPIAL EMULSION [Concomitant]
     Indication: DRY SKIN
     Dosage: 1 - 2 APPLICATIONS DAILY
     Route: 061
     Dates: start: 20160531
  30. DAFALGAN [Concomitant]
     Active Substance: ACETAMINOPHEN
     Indication: PAIN
     Dosage: DAILY DOSE: 1000 MG, PRN
     Route: 048
     Dates: start: 201604
  31. IMPORTAL [Concomitant]
     Active Substance: LACTITOL
     Dosage: 20 ML, TID
     Route: 048
     Dates: start: 20160614

REACTIONS (4)
  - Malignant neoplasm progression [Unknown]
  - Fatigue [Unknown]
  - Chest pain [Unknown]
  - Nervous system disorder [Unknown]

NARRATIVE: CASE EVENT DATE: 20160621
